FAERS Safety Report 21125144 (Version 1)
Quarter: 2022Q3

REPORT INFORMATION
  Report Type: Spontaneous
  Country: US (occurrence: None)
  Receive Date: 20220724
  Receipt Date: 20220724
  Transmission Date: 20221026
  Serious: Yes (Other)
  Sender: FDA-Public Use
  Company Number: None

PATIENT
  Age: 65 Year
  Sex: Male
  Weight: 65 kg

DRUGS (3)
  1. KISQALI [Suspect]
     Active Substance: RIBOCICLIB
     Indication: Breast cancer metastatic
     Dosage: 600 MG DAILY ORAL
     Route: 048
     Dates: start: 20220628
  2. ANASTROZOLE [Concomitant]
     Active Substance: ANASTROZOLE
  3. LUPRON [Concomitant]
     Active Substance: LEUPROLIDE ACETATE

REACTIONS (3)
  - Fatigue [None]
  - Cough [None]
  - Alopecia [None]

NARRATIVE: CASE EVENT DATE: 20220711
